FAERS Safety Report 10236298 (Version 1)
Quarter: 2014Q1

REPORT INFORMATION
  Report Type: Spontaneous
  Country: US (occurrence: None)
  Receive Date: 20140306
  Receipt Date: 20140306
  Transmission Date: 20141002
  Serious: Yes (Other)
  Sender: FDA-Public Use
  Company Number: 163-21880-13023837

PATIENT
  Age: 61 Year
  Sex: Male
  Weight: 86.2 kg

DRUGS (8)
  1. REVLIMID (LENALIDOMIDE) (15 MILLIGRAM, CAPSULES) [Suspect]
     Indication: PLASMA CELL MYELOMA
     Route: 048
     Dates: start: 20111103
  2. SYNTHROID (LEVOTHYROXINE SODIUM) (TABLETS) [Concomitant]
  3. GLIMEPIRIDE (GLIMEPIRIDE) (TABLETS) [Concomitant]
  4. VITAMIN D (ERGOCALCIFEROL) (TABLETS) [Concomitant]
  5. CALCIUM (CALCIUM) (TABLETS) [Concomitant]
  6. POTASSIUM CHLORIDE GRANULES (POTASSIUM CHLORIDE) (UNKNOWN) [Concomitant]
  7. DEXAMETHASONE (DEXAMETHASONE) (TABLETS) [Concomitant]
  8. ASPIRINE (ACETYLSALICYLIC ACID) (CHEWABLE TABLETS) [Concomitant]

REACTIONS (6)
  - Pruritus [None]
  - Rash [None]
  - Somnolence [None]
  - Diarrhoea [None]
  - Nasopharyngitis [None]
  - Drug dose omission [None]
